FAERS Safety Report 20060417 (Version 2)
Quarter: 2025Q3

REPORT INFORMATION
  Report Type: Report from Study
  Country: EG (occurrence: EG)
  Receive Date: 20211112
  Receipt Date: 20250702
  Transmission Date: 20251020
  Serious: Yes (Life-Threatening, Hospitalization, Other)
  Sender: NOVARTIS
  Company Number: EG-NOVARTISPH-NVSC2020EG077481

PATIENT
  Age: 65 Year
  Sex: Female

DRUGS (4)
  1. ENTRESTO [Suspect]
     Active Substance: SACUBITRIL\VALSARTAN
     Indication: Heart failure with reduced ejection fraction
     Dosage: 0.5 DF (100 MG HALF), BID
     Route: 048
     Dates: start: 20190301, end: 202004
  2. ENTRESTO [Suspect]
     Active Substance: SACUBITRIL\VALSARTAN
     Dosage: 0.5 DF (50 MG ), BID
     Route: 048
     Dates: start: 202004
  3. BISOPROLOL FUMARATE [Concomitant]
     Active Substance: BISOPROLOL FUMARATE
     Indication: Product used for unknown indication
     Route: 065
     Dates: end: 201904
  4. MIXTARD HUMAN 70/30 [Concomitant]
     Active Substance: INSULIN HUMAN
     Indication: Diabetes mellitus
     Dosage: 30 UNITS, BID (SINCE 10 YEARS AGO)
     Route: 065

REACTIONS (10)
  - Pulmonary oedema [Recovered/Resolved]
  - Dyspnoea [Recovering/Resolving]
  - Pain [Recovering/Resolving]
  - Ejection fraction decreased [Recovering/Resolving]
  - Nephrolithiasis [Not Recovered/Not Resolved]
  - Cystitis [Not Recovered/Not Resolved]
  - Bladder pain [Not Recovered/Not Resolved]
  - Product prescribing error [Unknown]
  - Wrong technique in product usage process [Unknown]
  - Drug ineffective [Unknown]

NARRATIVE: CASE EVENT DATE: 20190301
